FAERS Safety Report 8536609-3 (Version None)
Quarter: 2012Q3

REPORT INFORMATION
  Report Type: 
  Country: None (occurrence: None)
  Receive Date: 20120725
  Receipt Date: 20120720
  Transmission Date: 20120928
  Serious: Yes (Other)
  Sender: FDA-Public Use
  Company Number: US-PFIZER INC-2012133945

PATIENT
  Sex: Male

DRUGS (3)
  1. ULTRAM [Concomitant]
     Dosage: 100 MG, 4X/DAY
     Route: 048
  2. HUMALOG [Concomitant]
     Dosage: 75/25 25 UNITS, 2X/DAY
  3. LYRICA [Suspect]
     Dosage: 100 MG, 3X/DAY
     Route: 048

REACTIONS (2)
  - IMPAIRED WORK ABILITY [None]
  - NEUROPATHY PERIPHERAL [None]
